FAERS Safety Report 6743684-5 (Version None)
Quarter: 2010Q2

REPORT INFORMATION
  Report Type: 
  Country: None (occurrence: None)
  Receive Date: 20100526
  Receipt Date: 20100526
  Transmission Date: 20101027
  Serious: Yes (Other)
  Sender: FDA-Public Use
  Company Number: None

PATIENT
  Sex: Female
  Weight: 81.8 kg

DRUGS (2)
  1. TOPIRAMATE [Suspect]
     Dosage: 100 2 ORAL
     Route: 048
  2. TOPIRAMATE [Suspect]

REACTIONS (6)
  - BLEPHAROSPASM [None]
  - DRUG DISPENSING ERROR [None]
  - PRODUCT MEASURED POTENCY ISSUE [None]
  - PRODUCT SUBSTITUTION ISSUE [None]
  - UNEVALUABLE EVENT [None]
  - VISUAL IMPAIRMENT [None]
